FAERS Safety Report 18195273 (Version 1)
Quarter: 2020Q3

REPORT INFORMATION
  Report Type: Spontaneous
  Country: ES (occurrence: ES)
  Receive Date: 20200825
  Receipt Date: 20200825
  Transmission Date: 20201103
  Serious: Yes (Other)
  Sender: FDA-Public Use
  Company Number: ES-MYLANLABS-2020M1072751

PATIENT
  Age: 72 Year
  Sex: Female
  Weight: 93 kg

DRUGS (4)
  1. GLICLAZIDE [Suspect]
     Active Substance: GLICLAZIDE
     Indication: TYPE 2 DIABETES MELLITUS
     Dosage: 3?0?0
     Route: 065
     Dates: start: 20170517
  2. METFORMIN [Suspect]
     Active Substance: METFORMIN HYDROCHLORIDE
     Indication: TYPE 2 DIABETES MELLITUS
     Dosage: 1?0?1
     Route: 065
     Dates: start: 20170517
  3. ENALAPRIL/HYDROCHLOROTHIAZIDE [Suspect]
     Active Substance: ENALAPRIL MALEATE\HYDROCHLOROTHIAZIDE
     Indication: PRODUCT USED FOR UNKNOWN INDICATION
     Dosage: 20 MG/12.5 MG. 1 TABLET A DAY
     Route: 065
     Dates: start: 20150207
  4. IBUPROFEN. [Suspect]
     Active Substance: IBUPROFEN
     Indication: POLYARTHRITIS
     Dosage: 1?1?1?1
     Route: 065
     Dates: start: 20180527

REACTIONS (13)
  - Arthralgia [Unknown]
  - Hyperhidrosis [Unknown]
  - Diarrhoea [Unknown]
  - Drug interaction [Unknown]
  - Dizziness [Unknown]
  - Tremor [Unknown]
  - Malaise [Unknown]
  - Muscle spasms [Unknown]
  - Renal failure [Unknown]
  - Hypertension [Unknown]
  - Hypoglycaemia [Unknown]
  - Oedema peripheral [Unknown]
  - Decreased appetite [Unknown]
